FAERS Safety Report 7366945-8 (Version None)
Quarter: 2011Q1

REPORT INFORMATION
  Report Type: 
  Country: None (occurrence: None)
  Receive Date: 20110322
  Receipt Date: 20110308
  Transmission Date: 20110831
  Serious: Yes (Hospitalization)
  Sender: FDA-Public Use
  Company Number: US-JNJFOC-20100103611

PATIENT
  Sex: Female
  Weight: 40.4 kg

DRUGS (6)
  1. REMICADE [Suspect]
     Indication: INFLAMMATORY BOWEL DISEASE
     Route: 042
  2. METRONIDAZOLE [Concomitant]
  3. REMICADE [Suspect]
     Dosage: TOAL 18 DOSES
     Route: 042
  4. METHOTREXATE [Concomitant]
  5. PREDNISONE [Concomitant]
  6. MESALAMINE [Concomitant]
     Route: 048

REACTIONS (2)
  - MALNUTRITION [None]
  - CROHN'S DISEASE [None]
